FAERS Safety Report 19949323 (Version 1)
Quarter: 2021Q4

REPORT INFORMATION
  Report Type: Spontaneous
  Country: US (occurrence: US)
  Receive Date: 20211012
  Receipt Date: 20211012
  Transmission Date: 20220303
  Serious: Yes (Other)
  Sender: FDA-Public Use
  Company Number: None

PATIENT
  Age: 57 Year
  Sex: Female
  Weight: 81 kg

DRUGS (1)
  1. BARICITINIB [Suspect]
     Active Substance: BARICITINIB
     Indication: Coronavirus infection
     Dosage: ?          QUANTITY:2 CAPSULE(S);
     Route: 048
     Dates: start: 20210925, end: 20210927

REACTIONS (15)
  - General physical health deterioration [None]
  - Oxygen saturation decreased [None]
  - Heart rate decreased [None]
  - Pain [None]
  - Somnolence [None]
  - Cold sweat [None]
  - Skin sensitisation [None]
  - Ocular hyperaemia [None]
  - Glassy eyes [None]
  - Miosis [None]
  - Dyspnoea [None]
  - Chest pain [None]
  - Dyspepsia [None]
  - Feeling abnormal [None]
  - Pain in extremity [None]

NARRATIVE: CASE EVENT DATE: 20210928
